FAERS Safety Report 4395144-7 (Version None)
Quarter: 2004Q2

REPORT INFORMATION
  Report Type: 
  Country: None (occurrence: None)
  Receive Date: 20040621
  Receipt Date: 20021218
  Transmission Date: 20050107
  Serious: Yes (Death)
  Sender: FDA-Public Use
  Company Number: KII-2002-0009280

PATIENT
  Age: 40 Year
  Sex: Female

DRUGS (3)
  1. OXYCONTIN [Suspect]
     Dosage: 40 MG
  2. PERCOCET [Suspect]
     Dosage: 7.5 MG
  3. SOMA [Suspect]

REACTIONS (1)
  - MULTIPLE DRUG OVERDOSE [None]
